FAERS Safety Report 7256011-4 (Version None)
Quarter: 2011Q1

REPORT INFORMATION
  Report Type: 
  Country: None (occurrence: None)
  Receive Date: 20110129
  Receipt Date: 20100521
  Transmission Date: 20110831
  Serious: No
  Sender: FDA-Public Use
  Company Number: US-ABBOTT-10P-163-0646219-00

PATIENT
  Sex: Female
  Weight: 105.78 kg

DRUGS (10)
  1. MULTIVITAMIN [Concomitant]
     Indication: VITAMIN SUPPLEMENTATION
  2. LOVAZA [Concomitant]
     Indication: SUPPLEMENTATION THERAPY
  3. SYMBICORT [Concomitant]
     Indication: PRODUCT USED FOR UNKNOWN INDICATION
  4. MELOXICAM [Concomitant]
     Indication: PSORIASIS
  5. PROVENTIL [Concomitant]
     Indication: PRODUCT USED FOR UNKNOWN INDICATION
  6. ALLEGRA [Concomitant]
     Indication: PRODUCT USED FOR UNKNOWN INDICATION
  7. ACIPHEX [Concomitant]
     Indication: GASTRIC ULCER
  8. HUMIRA [Suspect]
     Indication: PSORIASIS
     Route: 058
     Dates: start: 20100311
  9. DETROL LA [Concomitant]
     Indication: BLADDER DISORDER
  10. CYCLOBENZAPRINE [Concomitant]
     Indication: MUSCLE TIGHTNESS
     Route: 048

REACTIONS (2)
  - ERYTHEMA [None]
  - RASH [None]
